FAERS Safety Report 8063552-9 (Version None)
Quarter: 2012Q1

REPORT INFORMATION
  Report Type: 
  Country: None (occurrence: None)
  Receive Date: 20120123
  Receipt Date: 20120111
  Transmission Date: 20120608
  Serious: Yes (Other)
  Sender: FDA-Public Use
  Company Number: US-ROCHE-794102

PATIENT
  Sex: Female
  Weight: 81.72 kg

DRUGS (3)
  1. ACCUTANE [Suspect]
     Indication: ACNE
     Route: 065
     Dates: start: 19900101, end: 19910101
  2. LOPID [Concomitant]
  3. XANAX [Concomitant]

REACTIONS (3)
  - INFLAMMATORY BOWEL DISEASE [None]
  - HYPERTENSION [None]
  - COLITIS ULCERATIVE [None]
